FAERS Safety Report 16869498 (Version 1)
Quarter: 2019Q3

REPORT INFORMATION
  Report Type: Spontaneous
  Country: US (occurrence: US)
  Receive Date: 20190930
  Receipt Date: 20190930
  Transmission Date: 20191005
  Serious: Yes (Other)
  Sender: FDA-Public Use
  Company Number: PHHY2019US225674

PATIENT
  Age: 86 Year
  Sex: Male

DRUGS (2)
  1. PREDNISONE. [Suspect]
     Active Substance: PREDNISONE
     Indication: PERIORBITAL INFLAMMATION
     Dosage: 40 MG, UNK
     Route: 048
  2. MYCOPHENOLATE MOFETIL. [Suspect]
     Active Substance: MYCOPHENOLATE MOFETIL
     Indication: PERIORBITAL INFLAMMATION
     Route: 065

REACTIONS (5)
  - Periorbital inflammation [Unknown]
  - Product use in unapproved indication [Unknown]
  - Eye pain [Unknown]
  - Disease recurrence [Unknown]
  - Blindness [Unknown]
